FAERS Safety Report 15913255 (Version 3)
Quarter: 2019Q3

REPORT INFORMATION
  Report Type: Report from Study
  Country: CO (occurrence: CO)
  Receive Date: 20190204
  Receipt Date: 20190827
  Transmission Date: 20191004
  Serious: Yes (Hospitalization)
  Sender: FDA-Public Use
  Company Number: PHHY2019CO025195

PATIENT
  Sex: Female
  Weight: 56 kg

DRUGS (3)
  1. TASIGNA [Suspect]
     Active Substance: NILOTINIB
     Indication: CHRONIC MYELOID LEUKAEMIA
     Dosage: 800 MG, QD
     Route: 048
  2. ESOMEPRAZOLE MAGNESIUM. [Suspect]
     Active Substance: ESOMEPRAZOLE MAGNESIUM
     Indication: GASTRITIS
     Dosage: UNK UNK, QD
     Route: 048
  3. TASIGNA [Suspect]
     Active Substance: NILOTINIB
     Dosage: 400 MG, Q12H
     Route: 048
     Dates: start: 201508

REACTIONS (8)
  - Malaise [Unknown]
  - Erythema [Recovered/Resolved]
  - Wound [Recovered/Resolved]
  - Skin discolouration [Recovered/Resolved]
  - Localised infection [Recovered/Resolved]
  - Discomfort [Recovered/Resolved]
  - Influenza [Unknown]
  - Inappropriate schedule of product administration [Unknown]
